FAERS Safety Report 7058296 (Version 5)
Quarter: 2013Q3

REPORT INFORMATION
  Report Type: Spontaneous
  Country: CA (occurrence: CA)
  Receive Date: 20090722
  Receipt Date: 20130918
  Transmission Date: 20140515
  Serious: Yes (Hospitalization, Other)
  Sender: FDA-Public Use
  Company Number: CA-ROCHE-GNE287076

PATIENT
  Age: 28 Year
  Sex: Female
  Weight: 56.07 kg

DRUGS (12)
  1. XOLAIR [Suspect]
     Indication: ASTHMA
     Route: 058
     Dates: start: 20050503
  2. XOLAIR [Suspect]
     Dosage: 300 MG, UNK
     Route: 058
     Dates: start: 20090707
  3. XOLAIR [Suspect]
     Route: 058
     Dates: start: 20130828
  4. VENTOLIN [Concomitant]
     Indication: PRODUCT USED FOR UNKNOWN INDICATION
  5. EPINEPHRINE [Concomitant]
     Indication: PRODUCT USED FOR UNKNOWN INDICATION
  6. SYMBICORT [Concomitant]
     Indication: PRODUCT USED FOR UNKNOWN INDICATION
  7. ALVESCO [Concomitant]
     Indication: PRODUCT USED FOR UNKNOWN INDICATION
  8. SPIRIVA [Concomitant]
     Indication: PRODUCT USED FOR UNKNOWN INDICATION
  9. OXYGEN [Concomitant]
     Indication: PRODUCT USED FOR UNKNOWN INDICATION
  10. SOLU-MEDROL [Concomitant]
  11. COMBIVENT [Concomitant]
  12. PREDNISONE [Concomitant]

REACTIONS (6)
  - Asthma [Recovering/Resolving]
  - Anxiety [Unknown]
  - Tremor [Unknown]
  - Sputum discoloured [Unknown]
  - Chest pain [Unknown]
  - Heart rate increased [Unknown]
